FAERS Safety Report 6229894-4 (Version None)
Quarter: 2009Q2

REPORT INFORMATION
  Report Type: 
  Country: None (occurrence: None)
  Receive Date: 20090615
  Receipt Date: 20090608
  Transmission Date: 20091009
  Serious: Yes (Hospitalization, Other)
  Sender: FDA-Public Use
  Company Number: CA-ELI_LILLY_AND_COMPANY-CA200906002404

PATIENT
  Age: 54 Year
  Sex: Female
  Weight: 30.385 kg

DRUGS (1)
  1. FORTEO [Suspect]
     Indication: OSTEOPOROSIS
     Dosage: 20 UG, DAILY (1/D)
     Route: 058
     Dates: start: 20080620

REACTIONS (6)
  - FACE INJURY [None]
  - FALL [None]
  - FATIGUE [None]
  - HEAD INJURY [None]
  - SKELETAL INJURY [None]
  - WEIGHT DECREASED [None]
